FAERS Safety Report 7749748-1 (Version None)
Quarter: 2011Q3

REPORT INFORMATION
  Report Type: 
  Country: None (occurrence: None)
  Receive Date: 20110914
  Receipt Date: 20110906
  Transmission Date: 20111222
  Serious: Yes (Other)
  Sender: FDA-Public Use
  Company Number: JP-BRISTOL-MYERS SQUIBB COMPANY-16033946

PATIENT
  Age: 69 Year
  Sex: Female

DRUGS (2)
  1. PACLITAXEL [Suspect]
     Indication: LUNG CANCER METASTATIC
     Dosage: DOSE:260MG/BODY DIV IN MID 2007
     Dates: start: 20070101, end: 20070101
  2. CARBOPLATIN [Suspect]
     Indication: LUNG CANCER METASTATIC
     Dosage: DOSE DECREASED:300MG/BODY, AUC 6
     Dates: end: 20070101

REACTIONS (4)
  - FATIGUE [None]
  - NEUTROPENIA [None]
  - PARAESTHESIA [None]
  - NERVE INJURY [None]
